FAERS Safety Report 25110414 (Version 1)
Quarter: 2025Q1

REPORT INFORMATION
  Report Type: Other
  Country: BE (occurrence: BE)
  Receive Date: 20250324
  Receipt Date: 20250324
  Transmission Date: 20250408
  Serious: Yes (Disabling, Other)
  Sender: Atnahs Healthcare
  Company Number: None

PATIENT
  Age: 64 Year
  Sex: Female
  Weight: 60 kg

DRUGS (1)
  1. NAPROXEN [Suspect]
     Active Substance: NAPROXEN
     Indication: Post-traumatic neck syndrome
     Dosage: 2/2/2
     Route: 048

REACTIONS (5)
  - Rash [Recovered/Resolved]
  - Anaphylactic shock [Recovered/Resolved]
  - Palpitations [Recovered/Resolved]
  - Tremor [Recovered/Resolved]
  - Prescribed overdose [Recovered/Resolved]
